FAERS Safety Report 7557386-9 (Version None)
Quarter: 2011Q2

REPORT INFORMATION
  Report Type: 
  Country: None (occurrence: None)
  Receive Date: 20110620
  Receipt Date: 20110603
  Transmission Date: 20111010
  Serious: No
  Sender: FDA-Public Use
  Company Number: US-B.I. PHARMACEUTICALS,INC./RIDGEFIELD-2011-BP-06739BP

PATIENT
  Sex: Female

DRUGS (13)
  1. PRADAXA [Suspect]
     Indication: ATRIAL FIBRILLATION
     Dosage: 300 MG
     Route: 048
     Dates: start: 20110101
  2. PRADAXA [Suspect]
     Indication: ANTICOAGULANT THERAPY
  3. HYDRALAZINE HCL [Concomitant]
  4. IMDUR [Concomitant]
  5. POTASSIUM [Concomitant]
  6. OMEPRAZOLE [Concomitant]
  7. MULTI-VITAMIN [Concomitant]
  8. VITAMIN D [Concomitant]
  9. LEVOTHYROXINE SODIUM [Concomitant]
  10. CALCIUM CITRATE [Concomitant]
  11. FERROUS SULFATE TAB [Concomitant]
  12. CARDIZEM [Concomitant]
  13. LASIX [Concomitant]

REACTIONS (1)
  - WHEEZING [None]
